FAERS Safety Report 4465244-1 (Version None)
Quarter: 2004Q3

REPORT INFORMATION
  Report Type: 
  Country: None (occurrence: None)
  Receive Date: 20040930
  Receipt Date: 20040930
  Transmission Date: 20050211
  Serious: Yes (Life-Threatening, Hospitalization)
  Sender: FDA-Public Use
  Company Number: None

PATIENT
  Sex: Male
  Weight: 34.5 kg

DRUGS (20)
  1. INTRALIPID 20% [Suspect]
     Indication: GASTROINTESTINAL DISORDER
     Dosage: 300 ML IN TPN DAILY
     Dates: start: 19971001
  2. INTRALIPID 20% [Suspect]
     Indication: GASTROSCHISIS
     Dosage: 300 ML IN TPN DAILY
     Dates: start: 19971001
  3. INTRALIPID 20% [Suspect]
  4. INTRALIPID 20% [Suspect]
  5. INTRALIPID 20% [Suspect]
  6. INTRALIPID 20% [Suspect]
  7. INTRALIPID 20% [Suspect]
  8. INTRALIPID 20% [Suspect]
  9. INTRALIPID 20% [Suspect]
  10. INTRALIPID 20% [Suspect]
  11. INTRALIPID 20% [Suspect]
  12. INTRALIPID 20% [Suspect]
  13. INTRALIPID 20% [Suspect]
  14. INTRALIPID 20% [Suspect]
  15. TPN WITH DEXTROSE [Concomitant]
  16. TRAVASOL 10% [Concomitant]
  17. M.V.I. [Concomitant]
  18. HEPARIN [Concomitant]
  19. LEVACARNITINE [Concomitant]
  20. INTRALIPID 20% [Suspect]

REACTIONS (5)
  - BILIRUBIN CONJUGATED INCREASED [None]
  - BLOOD BILIRUBIN INCREASED [None]
  - HAEMATOCHEZIA [None]
  - INTESTINAL OBSTRUCTION [None]
  - JAUNDICE [None]
